FAERS Safety Report 21367851 (Version 1)
Quarter: 2022Q3

REPORT INFORMATION
  Report Type: Spontaneous
  Country: US (occurrence: US)
  Receive Date: 20220923
  Receipt Date: 20220923
  Transmission Date: 20221027
  Serious: Yes (Other)
  Sender: FDA-Public Use
  Company Number: US-SA-SAC20220920001352

PATIENT

DRUGS (2)
  1. ZANTAC [Suspect]
     Active Substance: RANITIDINE HYDROCHLORIDE
     Dosage: PRESCRIPTION AND OVER THE COUNTER
     Route: 048
     Dates: start: 1998, end: 2005
  2. RANITIDINE HYDROCHLORIDE [Suspect]
     Active Substance: RANITIDINE HYDROCHLORIDE
     Dosage: PRESCRIPTION AND OVER THE COUNTER
     Route: 048
     Dates: start: 2005, end: 2006

REACTIONS (2)
  - Gastrointestinal carcinoma [Unknown]
  - Appendix cancer [Unknown]
